FAERS Safety Report 5590778-6 (Version None)
Quarter: 2008Q1

REPORT INFORMATION
  Report Type: 
  Country: None (occurrence: None)
  Receive Date: 20080114
  Receipt Date: 20080108
  Transmission Date: 20080703
  Serious: Yes (Other)
  Sender: FDA-Public Use
  Company Number: GB-PFIZER INC-2008002994

PATIENT
  Age: 45 Year
  Sex: Female
  Weight: 81 kg

DRUGS (1)
  1. METHYLPREDNISOLONE SODIUM SUCCINATE [Suspect]
     Route: 042

REACTIONS (3)
  - CATHETER SITE RELATED REACTION [None]
  - FLUSHING [None]
  - URTICARIA [None]
